FAERS Safety Report 23806654 (Version 4)
Quarter: 2025Q3

REPORT INFORMATION
  Report Type: Report from Study
  Country: CA (occurrence: None)
  Receive Date: 20240502
  Receipt Date: 20250728
  Transmission Date: 20251020
  Serious: Yes (Other)
  Sender: ORION
  Company Number: CA-PFIZER INC-202400098403

PATIENT
  Age: 77 Year
  Sex: Female

DRUGS (10)
  1. METHOTREXATE [Suspect]
     Active Substance: METHOTREXATE
     Indication: Product used for unknown indication
  2. METHOTREXATE [Suspect]
     Active Substance: METHOTREXATE
  3. ORENCIA [Suspect]
     Active Substance: ABATACEPT
     Indication: Rheumatoid arthritis
  4. ORENCIA [Suspect]
     Active Substance: ABATACEPT
  5. SEPTRA [Suspect]
     Active Substance: SULFAMETHOXAZOLE\TRIMETHOPRIM
     Indication: Product used for unknown indication
  6. CANDESARTAN [Concomitant]
     Active Substance: CANDESARTAN
  7. FOLIC ACID [Concomitant]
     Active Substance: FOLIC ACID
  8. GABAPENTIN [Concomitant]
     Active Substance: GABAPENTIN
  9. LIPITOR [Concomitant]
     Active Substance: ATORVASTATIN CALCIUM
  10. SULFASALAZINE [Concomitant]
     Active Substance: SULFASALAZINE

REACTIONS (9)
  - Pulmonary fibrosis [Not Recovered/Not Resolved]
  - Cough [Not Recovered/Not Resolved]
  - Dyspnoea [Not Recovered/Not Resolved]
  - Abdominal discomfort [Not Recovered/Not Resolved]
  - Furuncle [Not Recovered/Not Resolved]
  - Renal impairment [Not Recovered/Not Resolved]
  - Localised infection [Not Recovered/Not Resolved]
  - Sinusitis [Not Recovered/Not Resolved]
  - Product dose omission issue [Unknown]
